FAERS Safety Report 12353443 (Version 1)
Quarter: 2016Q2

REPORT INFORMATION
  Report Type: Spontaneous
  Country: US (occurrence: US)
  Receive Date: 20160510
  Receipt Date: 20160510
  Transmission Date: 20160815
  Serious: Yes (Death, Other)
  Sender: FDA-Public Use
  Company Number: US-TAKEDA-TPA2012A08581

PATIENT

DRUGS (8)
  1. METFORMIN [Concomitant]
     Active Substance: METFORMIN HYDROCHLORIDE
     Dosage: UNK
     Dates: start: 2001
  2. VICTOZA [Concomitant]
     Active Substance: LIRAGLUTIDE
     Indication: DIABETES MELLITUS
     Dosage: UNK
     Dates: start: 2012
  3. HUMULIN N [Concomitant]
     Active Substance: INSULIN HUMAN
     Dosage: UNK
     Dates: start: 2001
  4. ACTOS [Suspect]
     Active Substance: PIOGLITAZONE HYDROCHLORIDE
     Indication: TYPE 2 DIABETES MELLITUS
     Dosage: 15 MG, QD
     Route: 048
     Dates: start: 2001, end: 20120417
  5. AVANDIA [Concomitant]
     Active Substance: ROSIGLITAZONE MALEATE
     Dosage: UNK
  6. GLUCOPHAGE [Concomitant]
     Active Substance: METFORMIN HYDROCHLORIDE
     Dosage: UNK
  7. PRANDIN                            /01393601/ [Concomitant]
     Dosage: UNK
     Dates: start: 2001
  8. BYETTA [Concomitant]
     Active Substance: EXENATIDE
     Dosage: UNK
     Dates: start: 2009

REACTIONS (7)
  - Infection [Unknown]
  - Bladder cancer [Unknown]
  - Death [Fatal]
  - Anaemia [Unknown]
  - Urinary tract infection [Recovered/Resolved]
  - Peripheral swelling [Unknown]
  - Cystitis [Unknown]

NARRATIVE: CASE EVENT DATE: 200803
